FAERS Safety Report 6246047-4 (Version None)
Quarter: 2009Q2

REPORT INFORMATION
  Report Type: 
  Country: None (occurrence: None)
  Receive Date: 20090626
  Receipt Date: 20081223
  Transmission Date: 20091009
  Serious: No
  Sender: FDA-Public Use
  Company Number: A0761674A

PATIENT
  Age: 54 Year
  Sex: Female

DRUGS (4)
  1. IMITREX [Suspect]
     Indication: MIGRAINE
     Dosage: 50MG AS REQUIRED
     Route: 048
  2. IMITREX [Suspect]
     Dosage: 4MG AS REQUIRED
     Route: 058
  3. IMITREX [Suspect]
     Dosage: 6MG AS REQUIRED
     Route: 058
  4. FOSAMAX [Concomitant]

REACTIONS (3)
  - DRUG INEFFECTIVE [None]
  - HEADACHE [None]
  - MIGRAINE [None]
